FAERS Safety Report 8833515 (Version 1)
Quarter: 2012Q4

REPORT INFORMATION
  Report Type: 
  Country: JP (occurrence: JP)
  Receive Date: 20121010
  Receipt Date: 20121010
  Transmission Date: 20130627
  Serious: Yes (Hospitalization, Other)
  Sender: FDA-Public Use
  Company Number: JP-TEVA-362689ISR

PATIENT
  Age: 8 None
  Sex: Female

DRUGS (4)
  1. PREDNISOLONE [Suspect]
     Indication: RHEUMATOID ARTHRITIS
     Route: 065
  2. METHOTREXATE [Suspect]
     Indication: RHEUMATOID ARTHRITIS
     Dosage: 1.1429 Milligram Daily;
     Route: 065
  3. INFLIXIMAB [Suspect]
     Indication: RHEUMATOID ARTHRITIS
     Route: 065
  4. ISONIAZID [Concomitant]
     Indication: ANTIBIOTIC PROPHYLAXIS
     Route: 048

REACTIONS (5)
  - Pancytopenia [Recovering/Resolving]
  - Tuberculosis [Unknown]
  - Histiocytosis haematophagic [Unknown]
  - Disseminated intravascular coagulation [Unknown]
  - Epstein-Barr virus infection [Unknown]
